FAERS Safety Report 25903138 (Version 1)
Quarter: 2025Q4

REPORT INFORMATION
  Report Type: Spontaneous
  Country: RU (occurrence: RU)
  Receive Date: 20251009
  Receipt Date: 20251009
  Transmission Date: 20260117
  Serious: Yes (Hospitalization)
  Sender: NOVARTIS
  Company Number: RU-002147023-NVSC2025RU152049

PATIENT
  Age: 78 Year
  Sex: Female
  Weight: 78 kg

DRUGS (5)
  1. TEGRETOL XR [Suspect]
     Active Substance: CARBAMAZEPINE
     Indication: Product used for unknown indication
     Dosage: 300 MG (1.5 TABLET), QD
     Route: 048
     Dates: start: 20250914
  2. LEVOTHYROXINE [Concomitant]
     Active Substance: LEVOTHYROXINE
     Indication: Product used for unknown indication
     Dosage: 100 MG, QD
     Route: 065
  3. Telzap plus [Concomitant]
     Indication: Product used for unknown indication
     Dosage: 1 DOSAGE FORM (80 MG+12.5 MG), QD
     Route: 065
  4. LERCANIDIPINE HYDROCHLORIDE [Concomitant]
     Active Substance: LERCANIDIPINE HYDROCHLORIDE
     Indication: Product used for unknown indication
     Dosage: 20 MG, QD
     Route: 065
  5. MOXONIDINE [Concomitant]
     Active Substance: MOXONIDINE
     Indication: Blood pressure increased
     Dosage: UNK (0.2-0.4 MG)
     Route: 065

REACTIONS (4)
  - Angioedema [Recovered/Resolved]
  - Lip oedema [Unknown]
  - Eyelid oedema [Unknown]
  - Face oedema [Unknown]

NARRATIVE: CASE EVENT DATE: 20250914
